FAERS Safety Report 17711272 (Version 1)
Quarter: 2020Q2

REPORT INFORMATION
  Report Type: Spontaneous
  Country: US (occurrence: US)
  Receive Date: 20200424
  Receipt Date: 20200424
  Transmission Date: 20200714
  Serious: No
  Sender: FDA-Public Use
  Company Number: None

PATIENT
  Age: 10 Week
  Sex: Male

DRUGS (1)
  1. VITAMIN K [Suspect]
     Active Substance: PHYTONADIONE

REACTIONS (2)
  - Ear infection [None]
  - Deafness [None]

NARRATIVE: CASE EVENT DATE: 20180901
